FAERS Safety Report 5443275-2 (Version None)
Quarter: 2007Q3

REPORT INFORMATION
  Report Type: 
  Country: None (occurrence: None)
  Receive Date: 20070905
  Receipt Date: 20070827
  Transmission Date: 20080115
  Serious: Yes (Hospitalization, Other)
  Sender: FDA-Public Use
  Company Number: US-AMGEN-US240693

PATIENT
  Sex: Female

DRUGS (1)
  1. ENBREL [Suspect]
     Indication: PSORIATIC ARTHROPATHY
     Route: 058
     Dates: start: 20021201

REACTIONS (5)
  - ARTHRALGIA [None]
  - BONE DISORDER [None]
  - HIP FRACTURE [None]
  - PSORIASIS [None]
  - STAPHYLOCOCCAL INFECTION [None]
